FAERS Safety Report 18584448 (Version 1)
Quarter: 2020Q4

REPORT INFORMATION
  Report Type: Spontaneous
  Country: BE (occurrence: BE)
  Receive Date: 20201207
  Receipt Date: 20201207
  Transmission Date: 20210114
  Serious: Yes (Hospitalization)
  Sender: FDA-Public Use
  Company Number: BE-ROCHE-2722846

PATIENT
  Sex: Male

DRUGS (2)
  1. ATEZOLIZUMAB. [Suspect]
     Active Substance: ATEZOLIZUMAB
     Indication: HEPATOCELLULAR CARCINOMA
     Route: 041
     Dates: start: 20200819
  2. BEVACIZUMAB. [Suspect]
     Active Substance: BEVACIZUMAB
     Indication: HEPATOCELLULAR CARCINOMA
     Route: 065
     Dates: start: 20200819

REACTIONS (6)
  - Hepatitis [Unknown]
  - Dehydration [Recovered/Resolved]
  - Decreased appetite [Recovered/Resolved]
  - Fatigue [Unknown]
  - Diarrhoea [Recovered/Resolved]
  - Immune-mediated enterocolitis [Unknown]
